FAERS Safety Report 5509871-9 (Version None)
Quarter: 2007Q4

REPORT INFORMATION
  Report Type: 
  Country: None (occurrence: None)
  Receive Date: 20071030
  Receipt Date: 20061013
  Transmission Date: 20080405
  Serious: Yes (Other)
  Sender: FDA-Public Use
  Company Number: HQWYE148116OCT06

PATIENT
  Age: 52 Year
  Sex: Female
  Weight: 54.48 kg

DRUGS (4)
  1. PREMARIN [Suspect]
     Indication: HORMONE REPLACEMENT THERAPY
     Dosage: 1.25 MG 1X PER 1 DAY, ORAL, INITIALLY AN UNSPECIFIED LOWER DOSE, ORAL
     Route: 048
     Dates: end: 20060921
  2. PREMARIN [Suspect]
     Indication: HOT FLUSH
     Dosage: 1.25 MG 1X PER 1 DAY, ORAL, INITIALLY AN UNSPECIFIED LOWER DOSE, ORAL
     Route: 048
     Dates: end: 20060921
  3. PREMARIN [Suspect]
     Indication: HORMONE REPLACEMENT THERAPY
     Dosage: 1.25 MG 1X PER 1 DAY, ORAL, INITIALLY AN UNSPECIFIED LOWER DOSE, ORAL
     Route: 048
     Dates: start: 20041001
  4. PREMARIN [Suspect]
     Indication: HOT FLUSH
     Dosage: 1.25 MG 1X PER 1 DAY, ORAL, INITIALLY AN UNSPECIFIED LOWER DOSE, ORAL
     Route: 048
     Dates: start: 20041001

REACTIONS (2)
  - BREAST CANCER IN SITU [None]
  - DRUG EFFECT DECREASED [None]
